FAERS Safety Report 12053012 (Version 1)
Quarter: 2016Q1

REPORT INFORMATION
  Report Type: Spontaneous
  Country: US (occurrence: US)
  Receive Date: 20160209
  Receipt Date: 20160209
  Transmission Date: 20160526
  Serious: No
  Sender: FDA-Public Use
  Company Number: US-BAYER-2016-025469

PATIENT
  Age: 48 Year
  Sex: Male
  Weight: 136.5 kg

DRUGS (1)
  1. ALEVE [Suspect]
     Active Substance: NAPROXEN SODIUM
     Indication: ANALGESIC THERAPY
     Dosage: 2 DF, QD
     Route: 048
     Dates: start: 20160201, end: 20160203

REACTIONS (5)
  - Rash pruritic [None]
  - Hypersensitivity [None]
  - Rash [None]
  - Pruritus [None]
  - Upper extremity mass [None]

NARRATIVE: CASE EVENT DATE: 20160203
